FAERS Safety Report 7633907 (Version 3)
Quarter: 2012Q4

REPORT INFORMATION
  Report Type: 
  Country: US (occurrence: US)
  Receive Date: 20101019
  Receipt Date: 20120921
  Transmission Date: 20130627
  Serious: Yes (Life-Threatening)
  Sender: FDA-Public Use
  Company Number: US-US-EMD SERONO, INC.-231387J10USA

PATIENT
  Age: 60 None
  Sex: Female

DRUGS (3)
  1. REBIF [Suspect]
     Indication: MULTIPLE SCLEROSIS
     Route: 058
     Dates: start: 20091119, end: 2010
  2. REBIF [Suspect]
     Dates: start: 2010
  3. PRADAXA [Suspect]
     Indication: DEEP VEIN THROMBOSIS

REACTIONS (1)
  - Rectal haemorrhage [Unknown]
